FAERS Safety Report 5636435-9 (Version None)
Quarter: 2008Q1

REPORT INFORMATION
  Report Type: 
  Country: None (occurrence: None)
  Receive Date: 20080225
  Receipt Date: 20080128
  Transmission Date: 20080703
  Serious: No
  Sender: FDA-Public Use
  Company Number: A0705572A

PATIENT
  Age: 66 Year
  Sex: Male

DRUGS (3)
  1. VERAMYST [Suspect]
     Indication: NASAL CONGESTION
     Dosage: 2SPR PER DAY
     Route: 045
  2. ALTACE [Concomitant]
  3. UROXATRAL [Concomitant]

REACTIONS (1)
  - EPISTAXIS [None]
